FAERS Safety Report 5373871-2 (Version None)
Quarter: 2007Q2

REPORT INFORMATION
  Report Type: 
  Country: None (occurrence: None)
  Receive Date: 20070628
  Receipt Date: 20070618
  Transmission Date: 20071010
  Serious: Yes (Other)
  Sender: FDA-Public Use
  Company Number: JP-PFIZER INC-2007050257

PATIENT
  Age: 44 Year
  Sex: Male
  Weight: 70 kg

DRUGS (2)
  1. CABASER [Suspect]
     Route: 048
  2. PARLODEL [Concomitant]

REACTIONS (4)
  - ABNORMAL BEHAVIOUR [None]
  - DRUG ADMINISTRATION ERROR [None]
  - HYPERPROLACTINAEMIA [None]
  - THERAPEUTIC RESPONSE DECREASED [None]
